FAERS Safety Report 8479163-7 (Version None)
Quarter: 2012Q2

REPORT INFORMATION
  Report Type: 
  Country: None (occurrence: None)
  Receive Date: 20120629
  Receipt Date: 20120625
  Transmission Date: 20120825
  Serious: Yes (Death, Hospitalization)
  Sender: FDA-Public Use
  Company Number: IT-BAYER-2012-062308

PATIENT
  Age: 73 Year
  Sex: Male

DRUGS (4)
  1. ASPIRIN [Suspect]
     Dosage: 100 MG, QD
     Route: 048
     Dates: start: 20111219
  2. ZOLOFT [Concomitant]
     Dosage: UNK
     Route: 048
  3. RAMIPRIL [Concomitant]
     Dosage: UNK
     Route: 048
  4. CHLORTHALIDONE [Concomitant]
     Dosage: UNK
     Route: 048

REACTIONS (4)
  - DYSARTHRIA [None]
  - CEREBRAL HAEMORRHAGE [None]
  - HYPOXIC-ISCHAEMIC ENCEPHALOPATHY [None]
  - CONFUSIONAL STATE [None]
